FAERS Safety Report 9702973 (Version 1)
Quarter: 2013Q4

REPORT INFORMATION
  Report Type: Spontaneous
  Country: TR (occurrence: TR)
  Receive Date: 20131122
  Receipt Date: 20131122
  Transmission Date: 20140711
  Serious: Yes (Other)
  Sender: FDA-Public Use
  Company Number: TR-AMGEN-TURSP2013081782

PATIENT
  Sex: Female

DRUGS (7)
  1. ENBREL [Suspect]
     Indication: RHEUMATOID ARTHRITIS
     Dosage: 50 MG, WEEKLY
     Route: 058
     Dates: start: 20130510, end: 201309
  2. INSULIN [Concomitant]
     Indication: DIABETES MELLITUS
     Dosage: 20-22 UNITS, DAILY
     Route: 058
     Dates: start: 2012
  3. GLIFOR [Concomitant]
     Indication: DIABETES MELLITUS
     Dosage: 1 DF, DAILY (1X1 DAILY)
     Route: 048
     Dates: start: 2008
  4. NOVONORM [Concomitant]
     Indication: DIABETES MELLITUS
     Dosage: 3 DF, DAILY (3X1 DAILY)
     Route: 048
     Dates: start: 2008
  5. DELTACORTRIL                       /00016201/ [Concomitant]
     Indication: RHEUMATOID ARTHRITIS
     Dosage: 10 MG, DAILY (1X1 10MG DAILY)
     Route: 048
     Dates: start: 2007
  6. METHOTREXATE SODIUM [Concomitant]
     Indication: RHEUMATOID ARTHRITIS
     Dosage: UNK, WEEKLY (2-3 TABLET WEEKLY)
     Route: 048
     Dates: start: 2003
  7. PLAQUENIL                          /00072602/ [Concomitant]
     Indication: RHEUMATOID ARTHRITIS
     Dosage: 1 DF, DAILY (1X1 DAILY)
     Route: 048
     Dates: start: 2007

REACTIONS (2)
  - Blood glucose increased [Recovering/Resolving]
  - Back pain [Recovering/Resolving]
